FAERS Safety Report 12204376 (Version 1)
Quarter: 2016Q1

REPORT INFORMATION
  Report Type: Spontaneous
  Country: CA (occurrence: CA)
  Receive Date: 20160323
  Receipt Date: 20160323
  Transmission Date: 20160526
  Serious: Yes (Other)
  Sender: FDA-Public Use
  Company Number: CA-CONCORDIA PHARMACEUTICALS INC.-CO-PL-CA-2016-132

PATIENT
  Age: 46 Year
  Sex: Female

DRUGS (12)
  1. LEUCOVORIN CALCIUM. [Concomitant]
     Active Substance: LEUCOVORIN CALCIUM
  2. PLAQUENIL [Suspect]
     Active Substance: HYDROXYCHLOROQUINE SULFATE
     Indication: PRODUCT USED FOR UNKNOWN INDICATION
     Route: 065
  3. METHOTREXATE [Suspect]
     Active Substance: METHOTREXATE
     Indication: PRODUCT USED FOR UNKNOWN INDICATION
     Route: 065
  4. ACETAMINOPHEN. [Concomitant]
     Active Substance: ACETAMINOPHEN
  5. ACTONEL [Concomitant]
     Active Substance: RISEDRONATE SODIUM
  6. ZOPLICONE [Concomitant]
     Active Substance: ZOPICLONE
  7. RITUXAN [Suspect]
     Active Substance: RITUXIMAB
     Indication: DERMATOMYOSITIS
     Route: 042
  8. DIPHENHYDRAMINE HYDROCHLORIDE. [Concomitant]
     Active Substance: DIPHENHYDRAMINE HYDROCHLORIDE
  9. METHYLPREDNISOLONE. [Concomitant]
     Active Substance: METHYLPREDNISOLONE
  10. DIFLUCAN [Concomitant]
     Active Substance: FLUCONAZOLE
  11. EURO-D [Concomitant]
  12. PREDNISONE. [Concomitant]
     Active Substance: PREDNISONE

REACTIONS (7)
  - Migraine [None]
  - Road traffic accident [None]
  - Post-traumatic neck syndrome [None]
  - Off label use [None]
  - Abdominal pain [None]
  - Infusion related reaction [None]
  - Diarrhoea [None]
